FAERS Safety Report 18965228 (Version 1)
Quarter: 2021Q1

REPORT INFORMATION
  Report Type: Other
  Country: AT (occurrence: AT)
  Receive Date: 20210304
  Receipt Date: 20210304
  Transmission Date: 20210420
  Serious: Yes (Other)
  Sender: FDA-Public Use
  Company Number: AT-CELLTRION INC.-2021AT002498

PATIENT

DRUGS (6)
  1. TOCILIZUMAB. [Suspect]
     Active Substance: TOCILIZUMAB
     Dosage: 8 MG/KG, EVERY 4 WEEKS
     Route: 065
     Dates: start: 201810
  2. TOCILIZUMAB. [Suspect]
     Active Substance: TOCILIZUMAB
     Indication: OPTIC NEURITIS
     Dosage: 8 MG/KG, EVERY 4 WEEKS
     Route: 065
     Dates: start: 201703
  3. AZATHIOPRINE. [Concomitant]
     Active Substance: AZATHIOPRINE
  4. APREDNISLON [Concomitant]
     Active Substance: PREDNISOLONE
     Route: 048
  5. RITUXIMAB (UNKNOWN) [Suspect]
     Active Substance: RITUXIMAB
     Indication: OPTIC NEURITIS
     Dosage: UNK
     Route: 065
     Dates: start: 201607
  6. TOCILIZUMAB. [Suspect]
     Active Substance: TOCILIZUMAB
     Dosage: 8 MG/KG, EVERY 6 WEEKS
     Route: 065
     Dates: start: 201805

REACTIONS (3)
  - Off label use [Unknown]
  - Pneumocystis jirovecii pneumonia [Unknown]
  - Intentional product use issue [Unknown]

NARRATIVE: CASE EVENT DATE: 201608
